FAERS Safety Report 7525493-2 (Version None)
Quarter: 2011Q2

REPORT INFORMATION
  Report Type: 
  Country: None (occurrence: None)
  Receive Date: 20110526
  Receipt Date: 20110510
  Transmission Date: 20111010
  Serious: Yes (Hospitalization)
  Sender: FDA-Public Use
  Company Number: 2011PV000026

PATIENT
  Age: 35 Year
  Sex: Male

DRUGS (2)
  1. DEPOCYT [Suspect]
     Indication: METASTASES TO MENINGES
     Dosage: 50 MG;1X;INTH
     Route: 055
     Dates: start: 20110217, end: 20110217
  2. SOLDESAM /00016011/ (DEXAMETHASONE SODIUM SUCCINATE) [Suspect]
     Indication: METASTASES TO MENINGES
     Dosage: 8 MG;INTH
     Route: 037
     Dates: start: 20110217, end: 20110217

REACTIONS (5)
  - RESPIRATORY DISORDER [None]
  - DIZZINESS [None]
  - AGITATION [None]
  - DISORIENTATION [None]
  - CONFUSIONAL STATE [None]
